FAERS Safety Report 8780583 (Version 1)
Quarter: 2012Q4

REPORT INFORMATION
  Report Type: 
  Country: AU (occurrence: AU)
  Receive Date: 20120913
  Receipt Date: 20120913
  Transmission Date: 20130627
  Serious: Yes (Hospitalization)
  Sender: FDA-Public Use
  Company Number: AU-BRISTOL-MYERS SQUIBB COMPANY-16928277

PATIENT
  Age: 39 Year
  Sex: Female
  Weight: 107 kg

DRUGS (9)
  1. ORENCIA [Suspect]
     Indication: RHEUMATOID ARTHRITIS
     Route: 042
     Dates: start: 20111027
  2. NOVORAPID [Concomitant]
     Route: 058
  3. METHOTREXATE [Concomitant]
     Route: 048
  4. FOLIC ACID [Concomitant]
     Route: 048
  5. NEXIUM [Concomitant]
     Route: 048
  6. LEVEMIR [Concomitant]
     Dosage: 1df= 36 units
     Route: 058
  7. IMOVANE [Concomitant]
  8. THYROXINE [Concomitant]
  9. MOTILIUM [Concomitant]

REACTIONS (4)
  - Diabetic ketoacidosis [Recovering/Resolving]
  - Liver function test abnormal [Recovering/Resolving]
  - Nasopharyngitis [Recovering/Resolving]
  - Diarrhoea [Recovering/Resolving]
